FAERS Safety Report 22647974 (Version 1)
Quarter: 2023Q2

REPORT INFORMATION
  Report Type: Other
  Country: CA (occurrence: None)
  Receive Date: 20230628
  Receipt Date: 20230628
  Transmission Date: 20230721
  Serious: Yes (Other)
  Sender: FDA-Public Use
  Company Number: CA-Encube-000401

PATIENT
  Age: 58 Year
  Sex: Female

DRUGS (1)
  1. METRONIDAZOLE [Suspect]
     Active Substance: METRONIDAZOLE
     Indication: Pouchitis
     Dosage: 500 MG PO TID
     Route: 048

REACTIONS (2)
  - Toxic optic neuropathy [Recovering/Resolving]
  - Off label use [Unknown]
